FAERS Safety Report 23281151 (Version 1)
Quarter: 2023Q4

REPORT INFORMATION
  Report Type: Spontaneous
  Country: GB (occurrence: GB)
  Receive Date: 20231211
  Receipt Date: 20231211
  Transmission Date: 20240110
  Serious: Yes (Other)
  Sender: FDA-Public Use
  Company Number: None

PATIENT

DRUGS (2)
  1. PROTOPIC [Suspect]
     Active Substance: TACROLIMUS
     Indication: Product used for unknown indication
  2. ELOCON [Suspect]
     Active Substance: MOMETASONE FUROATE
     Indication: Product used for unknown indication
     Dosage: UNK
     Route: 003
     Dates: start: 2018

REACTIONS (8)
  - Drug hypersensitivity [Unknown]
  - Depression [Unknown]
  - Cognitive disorder [Unknown]
  - Rosacea [Unknown]
  - Burning sensation [Unknown]
  - Lupus-like syndrome [Unknown]
  - Lymph node tuberculosis [Unknown]
  - Autism spectrum disorder [Unknown]
